FAERS Safety Report 18755113 (Version 1)
Quarter: 2021Q1

REPORT INFORMATION
  Report Type: Spontaneous
  Country: US (occurrence: US)
  Receive Date: 20210117
  Receipt Date: 20210117
  Transmission Date: 20210419
  Serious: Yes (Other)
  Sender: FDA-Public Use
  Company Number: None

PATIENT
  Age: 49 Year
  Sex: Female
  Weight: 65.25 kg

DRUGS (3)
  1. PFIZER?BIONTECH COVID?19 VACCINE [Suspect]
     Active Substance: TOZINAMERAN
     Dates: start: 20210113, end: 20210113
  2. ESTRADIOL. [Concomitant]
     Active Substance: ESTRADIOL
  3. LISINOPRIL. [Concomitant]
     Active Substance: LISINOPRIL

REACTIONS (5)
  - Chills [None]
  - Pain [None]
  - Procedural pain [None]
  - Tremor [None]
  - Pyrexia [None]

NARRATIVE: CASE EVENT DATE: 20210114
